FAERS Safety Report 5775356-8 (Version None)
Quarter: 2008Q2

REPORT INFORMATION
  Report Type: 
  Country: None (occurrence: None)
  Receive Date: 20080617
  Receipt Date: 20080610
  Transmission Date: 20081010
  Serious: Yes (Life-Threatening, Hospitalization, Disabling, Other)
  Sender: FDA-Public Use
  Company Number: US-MERCK-0806USA01818

PATIENT

DRUGS (4)
  1. ISENTRESS [Suspect]
     Route: 048
  2. APTIVUS [Concomitant]
     Route: 065
  3. NORVIR [Concomitant]
     Route: 065
  4. VIREAD [Concomitant]
     Route: 065

REACTIONS (3)
  - MALAISE [None]
  - RASH [None]
  - STEVENS-JOHNSON SYNDROME [None]
